FAERS Safety Report 25028002 (Version 1)
Quarter: 2025Q1

REPORT INFORMATION
  Report Type: Spontaneous
  Country: US (occurrence: US)
  Receive Date: 20250301
  Receipt Date: 20250301
  Transmission Date: 20250408
  Serious: No
  Sender: SANOFI AVENTIS
  Company Number: US-SANOFI-02426439

PATIENT
  Age: 76 Year
  Sex: Male

DRUGS (3)
  1. LANTUS [Suspect]
     Active Substance: INSULIN GLARGINE
     Indication: Diabetes mellitus
     Dosage: 20 U, QD
  2. ADMELOG [Concomitant]
     Active Substance: INSULIN LISPRO
  3. ADMELOG [Concomitant]
     Active Substance: INSULIN LISPRO

REACTIONS (1)
  - Blood glucose fluctuation [Unknown]
